FAERS Safety Report 5962613-5 (Version None)
Quarter: 2008Q4

REPORT INFORMATION
  Report Type: 
  Country: None (occurrence: None)
  Receive Date: 20081121
  Receipt Date: 20081110
  Transmission Date: 20090506
  Serious: Yes (Other)
  Sender: FDA-Public Use
  Company Number: FR-PFIZER INC-2008097282

PATIENT
  Age: 57 Year
  Sex: Male

DRUGS (2)
  1. SUTENT [Suspect]
     Indication: METASTASES TO LUNG
     Dates: start: 20070801
  2. SUTENT [Suspect]
     Indication: METASTASES TO ADRENALS

REACTIONS (3)
  - ENTEROCOLITIS HAEMORRHAGIC [None]
  - LYMPHOPENIA [None]
  - THROMBOCYTOPENIA [None]
